FAERS Safety Report 4974347-4 (Version None)
Quarter: 2006Q2

REPORT INFORMATION
  Report Type: 
  Country: None (occurrence: None)
  Receive Date: 20060417
  Receipt Date: 20050718
  Transmission Date: 20061013
  Serious: Yes (Hospitalization, Disabling)
  Sender: FDA-Public Use
  Company Number: US-MERCK-0507USA02249

PATIENT
  Age: 55 Year
  Sex: Female
  Weight: 54 kg

DRUGS (7)
  1. VIOXX [Suspect]
     Indication: ARTHRITIS
     Route: 048
     Dates: start: 20030312, end: 20040527
  2. VIOXX [Suspect]
     Route: 048
     Dates: start: 20040601, end: 20040701
  3. TYLENOL (CAPLET) [Concomitant]
     Route: 065
  4. INDERAL [Concomitant]
     Route: 065
  5. LIPITOR [Concomitant]
     Route: 065
  6. ADVIL [Concomitant]
     Route: 065
  7. PEPCID [Concomitant]
     Route: 048

REACTIONS (5)
  - ACUTE MYOCARDIAL INFARCTION [None]
  - CARDIAC ARREST [None]
  - FALL [None]
  - HAEMORRHOIDS [None]
  - VENTRICULAR TACHYCARDIA [None]
